FAERS Safety Report 6506573-7 (Version None)
Quarter: 2009Q4

REPORT INFORMATION
  Report Type: 
  Country: None (occurrence: None)
  Receive Date: 20091221
  Receipt Date: 20091215
  Transmission Date: 20100525
  Serious: Yes (Hospitalization)
  Sender: FDA-Public Use
  Company Number: TW-JNJFOC-20091205103

PATIENT
  Sex: Male
  Weight: 66 kg

DRUGS (3)
  1. INVEGA [Suspect]
     Indication: HALLUCINATION, AUDITORY
     Route: 048
  2. CYMBALTA [Suspect]
     Indication: DEPRESSION
  3. CYMBALTA [Suspect]
     Indication: OBSESSIVE-COMPULSIVE DISORDER

REACTIONS (1)
  - SUICIDE ATTEMPT [None]
